FAERS Safety Report 11999156 (Version 5)
Quarter: 2018Q2

REPORT INFORMATION
  Report Type: Report from Study
  Country: CA (occurrence: CA)
  Receive Date: 20160204
  Receipt Date: 20180620
  Transmission Date: 20180711
  Serious: Yes (Hospitalization, Other)
  Sender: FDA-Public Use
  Company Number: CA-ROCHE-1262487

PATIENT
  Age: 72 Year
  Sex: Male
  Weight: 106 kg

DRUGS (18)
  1. ACETAMINOPHEN. [Concomitant]
     Active Substance: ACETAMINOPHEN
     Indication: PREMEDICATION
     Route: 048
     Dates: start: 20091105
  2. ACETAMINOPHEN. [Concomitant]
     Active Substance: ACETAMINOPHEN
     Route: 048
     Dates: start: 20111019
  3. METHOTREXATE. [Concomitant]
     Active Substance: METHOTREXATE
     Route: 065
  4. APO-HYDROXYZINE [Concomitant]
     Active Substance: HYDROXYZINE HYDROCHLORIDE
  5. PANTOLOC [Concomitant]
     Active Substance: PANTOPRAZOLE SODIUM
  6. ATORVASTATIN [Concomitant]
     Active Substance: ATORVASTATIN
  7. RITUXAN [Suspect]
     Active Substance: RITUXIMAB
     Dosage: DATE OF PREVIOUS RITUXIMAB INFUSION: 05/JAN/2015
     Route: 042
     Dates: start: 20171027
  8. BISOPROLOL [Concomitant]
     Active Substance: BISOPROLOL
  9. PLAQUENIL [Concomitant]
     Active Substance: HYDROXYCHLOROQUINE SULFATE
  10. DIPHENHYDRAMINE HCL [Concomitant]
     Active Substance: DIPHENHYDRAMINE HYDROCHLORIDE
     Indication: PREMEDICATION
     Route: 048
     Dates: start: 20091105
  11. EURO-FOLIC [Concomitant]
     Active Substance: FOLIC ACID
  12. ASPIRIN. [Concomitant]
     Active Substance: ASPIRIN
  13. RITUXAN [Suspect]
     Active Substance: RITUXIMAB
     Indication: RHEUMATOID ARTHRITIS
     Dosage: DATE OF PREVIOUS RITUXIMAB INFUSION: 05/JAN/2015
     Route: 042
     Dates: start: 20091105
  14. LIPITOR [Concomitant]
     Active Substance: ATORVASTATIN CALCIUM
  15. TYLENOL EXTRA STRENGTH [Concomitant]
     Active Substance: ACETAMINOPHEN
  16. SULFASALAZINE. [Concomitant]
     Active Substance: SULFASALAZINE
  17. PREGABALIN. [Concomitant]
     Active Substance: PREGABALIN
  18. METHYLPREDNISOLONE. [Concomitant]
     Active Substance: METHYLPREDNISOLONE
     Indication: PREMEDICATION
     Route: 042
     Dates: start: 20091105

REACTIONS (9)
  - Hypotension [Unknown]
  - Lung neoplasm malignant [Unknown]
  - Skin cancer [Not Recovered/Not Resolved]
  - Hot flush [Recovered/Resolved]
  - Ill-defined disorder [Recovered/Resolved]
  - Erythema [Recovered/Resolved]
  - Bronchitis [Recovered/Resolved]
  - Infusion related reaction [Unknown]
  - Oxygen saturation decreased [Unknown]

NARRATIVE: CASE EVENT DATE: 20130731
